FAERS Safety Report 5466130-0 (Version None)
Quarter: 2007Q3

REPORT INFORMATION
  Report Type: 
  Country: None (occurrence: None)
  Receive Date: 20070919
  Receipt Date: 20070907
  Transmission Date: 20080115
  Serious: Yes (Hospitalization, Other)
  Sender: FDA-Public Use
  Company Number: GXKR2007GB07845

PATIENT
  Age: 84 Year
  Sex: Female
  Weight: 92 kg

DRUGS (2)
  1. WARFARIN SODIUM [Suspect]
     Dosage: ORAL
     Route: 048
  2. NAPROXEN [Suspect]
     Indication: PAIN IN EXTREMITY
     Dosage: 500 MG, BID, ORAL
     Route: 048
     Dates: start: 20070524

REACTIONS (8)
  - CHEST PAIN [None]
  - DRUG INTERACTION [None]
  - EROSIVE OESOPHAGITIS [None]
  - GASTRITIS EROSIVE [None]
  - HAEMATEMESIS [None]
  - HAEMORRHAGIC CYST [None]
  - INTERNATIONAL NORMALISED RATIO INCREASED [None]
  - RENAL FAILURE [None]
